FAERS Safety Report 20566071 (Version 2)
Quarter: 2022Q3

REPORT INFORMATION
  Report Type: Report from Study
  Country: US (occurrence: US)
  Receive Date: 20220308
  Receipt Date: 20220701
  Transmission Date: 20221026
  Serious: Yes (Hospitalization, Other)
  Sender: FDA-Public Use
  Company Number: US-TAKEDA-2022TUS015228

PATIENT
  Age: 65 Year
  Sex: Female

DRUGS (10)
  1. TEDUGLUTIDE [Suspect]
     Active Substance: TEDUGLUTIDE
     Indication: Short-bowel syndrome
     Dosage: 3.8 MILLIGRAM, QD
     Route: 042
     Dates: start: 201310
  2. TEDUGLUTIDE [Suspect]
     Active Substance: TEDUGLUTIDE
     Indication: Short-bowel syndrome
     Dosage: 3.8 MILLIGRAM, QD
     Route: 042
     Dates: start: 201310
  3. TEDUGLUTIDE [Suspect]
     Active Substance: TEDUGLUTIDE
     Indication: Short-bowel syndrome
     Dosage: 3.8 MILLIGRAM, QD
     Route: 042
     Dates: start: 201310
  4. TEDUGLUTIDE [Suspect]
     Active Substance: TEDUGLUTIDE
     Indication: Short-bowel syndrome
     Dosage: 3.8 MILLIGRAM, QD
     Route: 042
     Dates: start: 201310
  5. SODIUM CHLORIDE [Concomitant]
     Active Substance: SODIUM CHLORIDE
     Indication: Short-bowel syndrome
     Dosage: 500 MILLILITER, QD
     Route: 042
     Dates: start: 201807
  6. HYDROMORPHONE [Concomitant]
     Active Substance: HYDROMORPHONE
     Indication: Pain
     Dosage: 5 MILLIGRAM, PRN
     Route: 048
     Dates: start: 201804
  7. VITAMINS [Concomitant]
     Active Substance: VITAMINS
     Indication: Hypovitaminosis
     Dosage: 1 DOSAGE FORM, QD
     Route: 048
     Dates: start: 201411
  8. VITAMINS [Concomitant]
     Active Substance: VITAMINS
     Indication: Short-bowel syndrome
  9. VITAMIN A [Concomitant]
     Active Substance: VITAMIN A
     Indication: Hypovitaminosis
     Dosage: 8000 INTERNATIONAL UNIT, QD
     Route: 048
     Dates: start: 201510
  10. VITAMIN A [Concomitant]
     Active Substance: VITAMIN A
     Indication: Short-bowel syndrome

REACTIONS (1)
  - Hepatic encephalopathy [Not Recovered/Not Resolved]

NARRATIVE: CASE EVENT DATE: 20220303
